FAERS Safety Report 20011488 (Version 1)
Quarter: 2021Q4

REPORT INFORMATION
  Report Type: Spontaneous
  Country: CN (occurrence: CN)
  Receive Date: 20211029
  Receipt Date: 20211029
  Transmission Date: 20220304
  Serious: Yes (Other)
  Sender: FDA-Public Use
  Company Number: CN-BAXTER-2021BAX033604

PATIENT
  Age: 56 Year
  Sex: Female
  Weight: 54 kg

DRUGS (5)
  1. MANNITOL [Suspect]
     Active Substance: MANNITOL
     Indication: Epidural haemorrhage
     Route: 041
     Dates: start: 20210905, end: 20210911
  2. MANNITOL [Suspect]
     Active Substance: MANNITOL
     Indication: Traumatic haemorrhage
  3. VANCOMYCIN HYDROCHLORIDE [Suspect]
     Active Substance: VANCOMYCIN HYDROCHLORIDE
     Indication: Anti-infective therapy
     Dosage: ROUTE: INTRA-PUMP INJECTION
     Route: 042
     Dates: start: 20210908, end: 20210911
  4. PIPERACILLIN SODIUM\SULBACTAM SODIUM [Suspect]
     Active Substance: PIPERACILLIN SODIUM\SULBACTAM SODIUM
     Indication: Anti-infective therapy
     Route: 041
     Dates: start: 20210907, end: 20210911
  5. VALPROATE SODIUM [Suspect]
     Active Substance: VALPROATE SODIUM
     Indication: Prophylaxis
     Dosage: TABLET FORM AND ROUTE: NASOGASTRIC GAVAGE
     Route: 045
     Dates: start: 20210905, end: 20210913

REACTIONS (2)
  - Dysbiosis [Recovering/Resolving]
  - Renal impairment [Recovering/Resolving]

NARRATIVE: CASE EVENT DATE: 20210910
